FAERS Safety Report 7048818-3 (Version None)
Quarter: 2010Q4

REPORT INFORMATION
  Report Type: 
  Country: None (occurrence: None)
  Receive Date: 20101018
  Receipt Date: 20101006
  Transmission Date: 20110411
  Serious: Yes (Hospitalization)
  Sender: FDA-Public Use
  Company Number: PHHY2010US66940

PATIENT
  Age: 62 Year
  Sex: Female
  Weight: 180 kg

DRUGS (2)
  1. RECLAST [Suspect]
     Indication: OSTEOPOROSIS
     Dosage: 5 MG, ANNUALLY
     Route: 042
     Dates: start: 20100916
  2. AMBIEN [Concomitant]

REACTIONS (2)
  - CONFUSIONAL STATE [None]
  - RENAL FAILURE ACUTE [None]
